FAERS Safety Report 10188087 (Version 1)
Quarter: 2014Q2

REPORT INFORMATION
  Report Type: Spontaneous
  Country: US (occurrence: US)
  Receive Date: 20140522
  Receipt Date: 20140522
  Transmission Date: 20141212
  Serious: No
  Sender: FDA-Public Use
  Company Number: US-SA-2013SA099298

PATIENT
  Age: 77 Year
  Sex: Male
  Weight: 65.77 kg

DRUGS (6)
  1. LANTUS SOLOSTAR [Suspect]
     Indication: TYPE 2 DIABETES MELLITUS
     Dosage: DOSE:14 UNIT(S)
     Route: 065
     Dates: start: 2007
  2. SOLOSTAR [Concomitant]
  3. QUINAPRIL [Concomitant]
     Route: 065
  4. METFORMIN [Concomitant]
     Route: 048
  5. CLOPIDOGREL [Concomitant]
     Route: 065
  6. ONGLYZA [Concomitant]
     Route: 065

REACTIONS (1)
  - Hypoacusis [Unknown]
